FAERS Safety Report 24918299 (Version 1)
Quarter: 2025Q1

REPORT INFORMATION
  Report Type: Spontaneous
  Country: US (occurrence: US)
  Receive Date: 20250203
  Receipt Date: 20250203
  Transmission Date: 20250408
  Serious: No
  Sender: PFIZER
  Company Number: US-PFIZER INC-202500021830

PATIENT
  Age: 49 Year
  Sex: Female

DRUGS (14)
  1. XELJANZ XR [Suspect]
     Active Substance: TOFACITINIB CITRATE
     Dosage: 11 MG, DAILY
     Route: 048
     Dates: start: 20241215
  2. OZEMPIC [Concomitant]
     Active Substance: SEMAGLUTIDE
  3. CONTRAVE [Concomitant]
     Active Substance: BUPROPION HYDROCHLORIDE\NALTREXONE HYDROCHLORIDE
  4. EXCEDRIN EXTRA STRENGTH [Concomitant]
     Active Substance: ACETAMINOPHEN\ASPIRIN\CAFFEINE
  5. NASONEX [Concomitant]
     Active Substance: MOMETASONE FUROATE
  6. BUSPIRONE HCL [Concomitant]
     Active Substance: BUSPIRONE HYDROCHLORIDE
  7. LEXAPRO [Concomitant]
     Active Substance: ESCITALOPRAM OXALATE
  8. DIETHYLPROPION HYDROCHLORIDE [Concomitant]
     Active Substance: DIETHYLPROPION HYDROCHLORIDE
  9. FISH OIL [Concomitant]
     Active Substance: FISH OIL
  10. VITAMIN D2 [Concomitant]
     Active Substance: ERGOCALCIFEROL
  11. HERBALS\TURMERIC [Concomitant]
     Active Substance: HERBALS\TURMERIC
  12. TYLENOL [Concomitant]
     Active Substance: ACETAMINOPHEN
  13. ECHINACEA + GOLDENSEAL [Concomitant]
  14. COENZYME Q10 [Concomitant]
     Active Substance: DIETARY SUPPLEMENT\UBIDECARENONE

REACTIONS (7)
  - Nasopharyngitis [Unknown]
  - Hypersensitivity [Unknown]
  - Nasal congestion [Unknown]
  - Rhinorrhoea [Unknown]
  - Headache [Unknown]
  - Pain [Unknown]
  - Musculoskeletal stiffness [Unknown]
